FAERS Safety Report 23509683 (Version 2)
Quarter: 2024Q1

REPORT INFORMATION
  Report Type: Report from Study
  Country: US (occurrence: US)
  Receive Date: 20240210
  Receipt Date: 20240301
  Transmission Date: 20240410
  Serious: Yes (Hospitalization)
  Sender: FDA-Public Use
  Company Number: US-002147023-NVSC2024US028134

PATIENT
  Sex: Female
  Weight: 86.18 kg

DRUGS (17)
  1. GILENYA [Suspect]
     Active Substance: FINGOLIMOD HYDROCHLORIDE
     Indication: Product used for unknown indication
     Dosage: 1 DOSAGE FORM, QD, TAKE 1 CAPSULE (0.5 MG) BY MOUTH 1 (ONE) TIME EACH DAY AT THE SAME TIME, DISP 90
     Route: 048
  2. ATORVASTATIN [Concomitant]
     Active Substance: ATORVASTATIN
     Indication: Product used for unknown indication
     Dosage: 40 MG, TAKE 40 MG BY MOUTH IN THE MORNING
     Route: 048
  3. VITAMIN D3 [Concomitant]
     Active Substance: CHOLECALCIFEROL
     Indication: Product used for unknown indication
     Dosage: 50 MCG (2000 DOSAGE FORM), QD, (BY MOUTH 1 (ONE) TIME EACH DAY AT THE SAME TIME)
     Route: 048
  4. DULOXETINE [Concomitant]
     Active Substance: DULOXETINE
     Indication: Product used for unknown indication
     Dosage: 60 MG, DR, BY MOUTH IN THE MORNING
     Route: 065
  5. IBUPROFEN [Concomitant]
     Active Substance: IBUPROFEN
     Indication: Product used for unknown indication
     Dosage: 200 MG, Q8H
     Route: 065
  6. LISINOPRIL [Concomitant]
     Active Substance: LISINOPRIL
     Indication: Product used for unknown indication
     Dosage: 20 MG, TAKE 20 MG BY MOUTH IN THE MORNING
     Route: 048
  7. MINERALS\VITAMINS [Concomitant]
     Active Substance: MINERALS\VITAMINS
     Indication: Product used for unknown indication
     Route: 048
  8. OMEGA-3 ACIDS [Concomitant]
     Active Substance: OMEGA-3 FATTY ACIDS
     Indication: Product used for unknown indication
     Dosage: 1 DOSAGE FORM, QD, 1 CAPSULE 1 (ONE) TIME EACH DAY AT THE SAME TIME.
     Route: 065
  9. BIOTIN [Concomitant]
     Active Substance: BIOTIN
     Indication: Neuralgia
     Dosage: 1 DOSAGE FORM, Q12H, TAKE 1 TABLET (10 MG) BY MOUTH EVERY 12 (TWELVE) HOURS, DISP: 60 TABLET, RFL: 1
     Route: 048
  10. BIOTIN [Concomitant]
     Active Substance: BIOTIN
     Indication: Neuropathy peripheral
  11. FOCALIN [Concomitant]
     Active Substance: DEXMETHYLPHENIDATE HYDROCHLORIDE
     Indication: Product used for unknown indication
     Dosage: 1 DOSAGE FORM, TAKE 1 TABLET (5 MG) BY MOUTH IN THE MORNING AND 1 TABLET (5 MG) BEFORE BEDTIME., DIS
     Route: 065
  12. DELTASONE [Concomitant]
     Active Substance: PREDNISONE
     Indication: Greater trochanteric pain syndrome
     Dosage: 3 DOSAGE FORM, TAKE 3 TABLETS DAILY FOR 3 DAYS,
     Route: 065
  13. DELTASONE [Concomitant]
     Active Substance: PREDNISONE
     Indication: Pain in extremity
     Dosage: 2 DOSAGE FORM, (2 TABS DAILY FOR 3 DAYS)
     Route: 065
  14. DELTASONE [Concomitant]
     Active Substance: PREDNISONE
     Indication: Multiple sclerosis
     Dosage: 1 DOSAGE FORM, (1 TAB DAILY FOR 3 DAYS), DISP: 18 TABLET, RFL: 1
     Route: 065
  15. LYRICA [Concomitant]
     Active Substance: PREGABALIN
     Indication: Greater trochanteric pain syndrome
     Dosage: 1 DOSAGE FORM, TAKE 1 CAPSULE (50 MG) BY MOUTH IN THE MORNING AND 1 CAPSULE (50 MG) IN THE EVENING A
     Route: 048
  16. LYRICA [Concomitant]
     Active Substance: PREGABALIN
     Indication: Pain in extremity
  17. LYRICA [Concomitant]
     Active Substance: PREGABALIN
     Indication: Multiple sclerosis

REACTIONS (4)
  - Urinary tract infection [Unknown]
  - Influenza [Unknown]
  - Sepsis [Unknown]
  - Speech disorder [Unknown]
